FAERS Safety Report 6786376-9 (Version None)
Quarter: 2010Q2

REPORT INFORMATION
  Report Type: 
  Country: None (occurrence: None)
  Receive Date: 20100623
  Receipt Date: 20100615
  Transmission Date: 20101027
  Serious: Yes (Other)
  Sender: FDA-Public Use
  Company Number: US-AMGEN-QUU418341

PATIENT
  Sex: Male

DRUGS (6)
  1. NEUPOGEN [Suspect]
     Indication: DRUG USE FOR UNKNOWN INDICATION
     Dates: start: 20100512
  2. NEULASTA [Suspect]
     Indication: CHEMOTHERAPY
     Route: 065
     Dates: start: 20090801
  3. PEGASYS [Suspect]
     Dates: start: 20090617
  4. RIBAVIRIN [Suspect]
     Dates: start: 20090617
  5. SORIATANE [Concomitant]
  6. LISINOPRIL [Concomitant]

REACTIONS (11)
  - ANXIETY [None]
  - CHILLS [None]
  - DEPRESSION [None]
  - FATIGUE [None]
  - HYPERHIDROSIS [None]
  - HYPERTENSION [None]
  - INFLUENZA LIKE ILLNESS [None]
  - NAUSEA [None]
  - PSORIASIS [None]
  - WEIGHT DECREASED [None]
  - WHITE BLOOD CELL COUNT DECREASED [None]
